FAERS Safety Report 10380287 (Version 1)
Quarter: 2014Q3

REPORT INFORMATION
  Report Type: Spontaneous
  Country: US (occurrence: None)
  Receive Date: 20140812
  Receipt Date: 20140812
  Transmission Date: 20150326
  Serious: Yes (Other)
  Sender: FDA-Public Use
  Company Number: None

PATIENT
  Age: 50 Year
  Sex: Female
  Weight: 61.69 kg

DRUGS (1)
  1. VIVELLE [Suspect]
     Active Substance: ESTRADIOL
     Indication: ENDOCRINE DISORDER
     Dosage: STRENGTH: 1.0  2PATCHES PER WEEK  PATCH/SKIN
     Route: 062
     Dates: start: 201302, end: 201404

REACTIONS (1)
  - Pain [None]

NARRATIVE: CASE EVENT DATE: 20130202
